FAERS Safety Report 16201074 (Version 1)
Quarter: 2019Q2

REPORT INFORMATION
  Report Type: Spontaneous
  Country: US (occurrence: US)
  Receive Date: 20190416
  Receipt Date: 20190416
  Transmission Date: 20190711
  Serious: No
  Sender: FDA-Public Use
  Company Number: US-BION-007202

PATIENT
  Age: 52 Year
  Sex: Male
  Weight: 111 kg

DRUGS (1)
  1. ALEVE [Suspect]
     Active Substance: NAPROXEN SODIUM
     Indication: PAIN
     Dosage: REDUCED DOSE AFTER ONE MONTH TO 2 DF IN THE MORNING AND 1 DF IN THE EVENING
     Route: 048
     Dates: start: 201803

REACTIONS (4)
  - Abdominal pain upper [Recovered/Resolved]
  - Incorrect dose administered [Not Recovered/Not Resolved]
  - Product packaging quantity issue [Unknown]
  - Incorrect product administration duration [Not Recovered/Not Resolved]

NARRATIVE: CASE EVENT DATE: 201803
